FAERS Safety Report 25920836 (Version 2)
Quarter: 2025Q4

REPORT INFORMATION
  Report Type: Spontaneous
  Country: CA (occurrence: CA)
  Receive Date: 20251014
  Receipt Date: 20251015
  Transmission Date: 20260118
  Serious: Yes (Other)
  Sender: PFIZER
  Company Number: CA-PFIZER INC-202500142709

PATIENT
  Age: 62 Year
  Sex: Female
  Weight: 97 kg

DRUGS (2)
  1. IXIFI [Suspect]
     Active Substance: INFLIXIMAB-QBTX
     Indication: Crohn^s disease
     Dosage: 5 MG/KG, EVERY 8 WEEKS
     Route: 042
     Dates: start: 20250704
  2. IXIFI [Suspect]
     Active Substance: INFLIXIMAB-QBTX
     Dosage: 485 MG, 14 WEEKS (EVERY 8 WEEKS)
     Route: 042
     Dates: start: 20251010

REACTIONS (1)
  - Large intestinal stenosis [Unknown]

NARRATIVE: CASE EVENT DATE: 20250101
